FAERS Safety Report 5445849-1 (Version None)
Quarter: 2007Q3

REPORT INFORMATION
  Report Type: 
  Country: None (occurrence: None)
  Receive Date: 20070904
  Receipt Date: 20070823
  Transmission Date: 20080115
  Serious: Yes (Hospitalization)
  Sender: FDA-Public Use
  Company Number: 2007JP000372

PATIENT
  Age: 1 Year
  Sex: Female

DRUGS (2)
  1. PROGRAF [Suspect]
     Indication: LIVER TRANSPLANT
     Dosage: 0.8 MG, /D, ORAL, 1.6 MG, /D, ORAL
     Route: 049
     Dates: start: 20070116, end: 20070117
  2. PROGRAF [Suspect]
     Indication: LIVER TRANSPLANT
     Dosage: 0.8 MG, /D, ORAL, 1.6 MG, /D, ORAL
     Route: 049
     Dates: start: 20070118, end: 20070122

REACTIONS (2)
  - CONVULSION [None]
  - DYSKINESIA [None]
